FAERS Safety Report 6350750-5 (Version None)
Quarter: 2009Q3

REPORT INFORMATION
  Report Type: 
  Country: None (occurrence: None)
  Receive Date: 20090911
  Receipt Date: 20090622
  Transmission Date: 20100115
  Serious: No
  Sender: FDA-Public Use
  Company Number: US-ABBOTT-07P-163-0370824-00

PATIENT
  Sex: Male
  Weight: 52.21 kg

DRUGS (9)
  1. HUMIRA [Suspect]
     Indication: CROHN'S DISEASE
     Route: 058
     Dates: start: 20070510, end: 20070524
  2. HUMIRA [Suspect]
     Route: 058
     Dates: start: 20070524
  3. HUMIRA [Suspect]
     Route: 058
     Dates: start: 20070607
  4. PREDNISONE [Concomitant]
     Indication: CROHN'S DISEASE
     Route: 048
  5. MERCAPTOPURINE [Concomitant]
     Indication: CROHN'S DISEASE
     Route: 048
  6. MIRTAZAPINE [Concomitant]
     Indication: DRUG USE FOR UNKNOWN INDICATION
     Route: 048
  7. LANSOPRAZOLE [Concomitant]
     Indication: GASTROOESOPHAGEAL REFLUX DISEASE
     Route: 048
  8. FLUOXETINE HCL [Concomitant]
     Indication: ANXIETY
     Route: 048
  9. FLUOXETINE HCL [Concomitant]
     Indication: DEPRESSION

REACTIONS (1)
  - INCORRECT DOSE ADMINISTERED [None]
